FAERS Safety Report 26074960 (Version 1)
Quarter: 2025Q4

REPORT INFORMATION
  Report Type: Spontaneous
  Country: US (occurrence: US)
  Receive Date: 20251121
  Receipt Date: 20251121
  Transmission Date: 20260118
  Serious: Yes (Other)
  Sender: NOVO NORDISK
  Company Number: US-NOVOPROD-1564765

PATIENT
  Age: 9 Year
  Sex: Female

DRUGS (3)
  1. NORDITROPIN [Suspect]
     Active Substance: SOMATROPIN
     Indication: Hypopituitarism
     Dosage: 0.6 MG, QD
     Dates: start: 20250910, end: 20251101
  2. NORDITROPIN [Suspect]
     Active Substance: SOMATROPIN
     Indication: Developmental delay
  3. NORDITROPIN [Suspect]
     Active Substance: SOMATROPIN
     Indication: Motor developmental delay

REACTIONS (3)
  - Sleep apnoea syndrome [Recovered/Resolved]
  - Condition aggravated [Recovered/Resolved]
  - Hypoxia [Recovered/Resolved]

NARRATIVE: CASE EVENT DATE: 20251016
